FAERS Safety Report 6656225-8 (Version None)
Quarter: 2010Q1

REPORT INFORMATION
  Report Type: 
  Country: None (occurrence: None)
  Receive Date: 20100329
  Receipt Date: 20100322
  Transmission Date: 20100710
  Serious: Yes (Other)
  Sender: FDA-Public Use
  Company Number: US-MERCK-0708USA00998

PATIENT
  Age: 45 Year
  Sex: Female
  Weight: 47 kg

DRUGS (6)
  1. FOSAMAX [Suspect]
     Indication: OSTEOPOROSIS
     Route: 048
     Dates: start: 20010801, end: 20040501
  2. ESTRADIOL [Concomitant]
     Route: 065
     Dates: start: 20010101
  3. LEXAPRO [Concomitant]
     Indication: DEPRESSION
     Route: 065
     Dates: start: 20010101, end: 20070101
  4. [THERAPY UNSPECIFIED] [Concomitant]
     Indication: BLOOD CHOLESTEROL INCREASED
     Route: 065
     Dates: start: 20000101
  5. TUSSI-12 [Concomitant]
     Indication: COUGH
     Route: 065
     Dates: start: 20010601
  6. TUSSI-12 [Concomitant]
     Indication: SINUS CONGESTION
     Route: 065
     Dates: start: 20010601

REACTIONS (13)
  - ABSCESS ORAL [None]
  - ANXIETY [None]
  - CONVULSION [None]
  - DENTAL CARIES [None]
  - FUNGAL INFECTION [None]
  - HYPERSENSITIVITY [None]
  - IMPAIRED HEALING [None]
  - ORAL INFECTION [None]
  - ORAL TORUS [None]
  - OSTEOMYELITIS [None]
  - OSTEONECROSIS [None]
  - PAIN [None]
  - PERNICIOUS ANAEMIA [None]
